FAERS Safety Report 17629385 (Version 1)
Quarter: 2020Q2

REPORT INFORMATION
  Report Type: Spontaneous
  Country: US (occurrence: US)
  Receive Date: 20200406
  Receipt Date: 20200406
  Transmission Date: 20200713
  Serious: No
  Sender: FDA-Public Use
  Company Number: US-GLAXOSMITHKLINE-US2020AMR057350

PATIENT
  Age: 56 Year
  Sex: Female

DRUGS (1)
  1. ALBUTEROL SULFATE INHALATION POWDER [Suspect]
     Active Substance: ALBUTEROL SULFATE
     Indication: DYSPNOEA
     Dosage: UNK, EVERY FOUR HOURS
     Route: 065

REACTIONS (5)
  - Product dose omission [Unknown]
  - Off label use [Unknown]
  - Underdose [Unknown]
  - Product storage error [Unknown]
  - Wrong technique in device usage process [Unknown]
